FAERS Safety Report 6974990-7 (Version None)
Quarter: 2010Q3

REPORT INFORMATION
  Report Type: 
  Country: None (occurrence: None)
  Receive Date: 20100910
  Receipt Date: 20090121
  Transmission Date: 20110219
  Serious: No
  Sender: FDA-Public Use
  Company Number: US-WYE-H07813109

PATIENT
  Sex: Female
  Weight: 85.81 kg

DRUGS (4)
  1. PRISTIQ [Suspect]
     Indication: ANXIETY
     Route: 048
     Dates: start: 20081201
  2. PRISTIQ [Suspect]
     Indication: DEPRESSION
  3. PSEUDOEPHEDRINE HYDROCHLORIDE [Concomitant]
  4. CETIRIZINE HYDROCHLORIDE [Concomitant]

REACTIONS (3)
  - ANXIETY [None]
  - CONDITION AGGRAVATED [None]
  - DEPRESSION [None]
